FAERS Safety Report 5685263-7 (Version None)
Quarter: 2008Q1

REPORT INFORMATION
  Report Type: 
  Country: None (occurrence: None)
  Receive Date: 20080328
  Receipt Date: 20080317
  Transmission Date: 20080703
  Serious: Yes (Other)
  Sender: FDA-Public Use
  Company Number: JP-PFIZER INC-2008020977

PATIENT
  Sex: Male
  Weight: 62 kg

DRUGS (3)
  1. ZITHROMAX [Suspect]
     Indication: UPPER RESPIRATORY TRACT INFLAMMATION
     Dosage: TEXT:2 TABLETS
     Route: 048
     Dates: start: 20080204, end: 20080224
  2. LOXOPROFEN SODIUM [Suspect]
     Indication: UPPER RESPIRATORY TRACT INFLAMMATION
     Dosage: TEXT:3 TABLETS
     Route: 048
     Dates: start: 20080204, end: 20080225
  3. NAUZELIN [Suspect]
     Indication: UPPER RESPIRATORY TRACT INFLAMMATION
     Dosage: TEXT:3 TABLETS
     Route: 048
     Dates: start: 20080222, end: 20080225

REACTIONS (7)
  - DRUG ERUPTION [None]
  - DYSSTASIA [None]
  - GAIT DISTURBANCE [None]
  - HENOCH-SCHONLEIN PURPURA [None]
  - OEDEMA [None]
  - PAIN [None]
  - PITTING OEDEMA [None]
